FAERS Safety Report 9041249 (Version 1)
Quarter: 2013Q1

REPORT INFORMATION
  Report Type: Spontaneous
  Country: GB (occurrence: None)
  Receive Date: 20130123
  Receipt Date: 20130123
  Transmission Date: 20140127
  Serious: No
  Sender: FDA-Public Use
  Company Number: None

PATIENT
  Sex: 0

DRUGS (1)
  1. LARIAM [Suspect]

REACTIONS (10)
  - Anxiety [None]
  - Crying [None]
  - Nervousness [None]
  - Agitation [None]
  - Disturbance in attention [None]
  - Obsessive thoughts [None]
  - Hallucination [None]
  - Panic attack [None]
  - Social avoidant behaviour [None]
  - Depression [None]
